FAERS Safety Report 15940110 (Version 5)
Quarter: 2022Q1

REPORT INFORMATION
  Report Type: Spontaneous
  Country: US (occurrence: None)
  Receive Date: 20190208
  Receipt Date: 20220331
  Transmission Date: 20220423
  Serious: Yes (Other)
  Sender: FDA-Public Use
  Company Number: 2018SF20966

PATIENT
  Age: 23985 Day
  Sex: Female
  Weight: 50.8 kg

DRUGS (61)
  1. NEXIUM [Suspect]
     Active Substance: ESOMEPRAZOLE MAGNESIUM
     Indication: Gastrooesophageal reflux disease
     Route: 048
     Dates: start: 20060101, end: 20151231
  2. NEXIUM [Suspect]
     Active Substance: ESOMEPRAZOLE MAGNESIUM
     Indication: Gastrooesophageal reflux disease
     Dosage: DELAYED RELEASEED
     Route: 048
  3. NEXIUM [Suspect]
     Active Substance: ESOMEPRAZOLE MAGNESIUM
     Indication: Gastrooesophageal reflux disease
     Dosage: GENERIC
     Route: 065
     Dates: start: 20140328, end: 20151231
  4. NEXIUM 24HR [Suspect]
     Active Substance: ESOMEPRAZOLE MAGNESIUM
     Indication: Gastrooesophageal reflux disease
     Route: 048
  5. PRILOSEC [Suspect]
     Active Substance: OMEPRAZOLE MAGNESIUM
     Indication: Gastrooesophageal reflux disease
     Route: 048
     Dates: start: 20060101, end: 20151231
  6. PRILOSEC [Suspect]
     Active Substance: OMEPRAZOLE MAGNESIUM
     Indication: Gastrooesophageal reflux disease
     Dosage: GENERIC
     Route: 065
     Dates: start: 20060101, end: 20151231
  7. PRILOSEC OTC [Suspect]
     Active Substance: OMEPRAZOLE MAGNESIUM
     Indication: Gastrooesophageal reflux disease
     Route: 048
     Dates: start: 20060101, end: 20151231
  8. PRILOSEC OTC [Suspect]
     Active Substance: OMEPRAZOLE MAGNESIUM
     Indication: Gastrooesophageal reflux disease
     Route: 048
     Dates: start: 200601, end: 201712
  9. PREVACID [Suspect]
     Active Substance: LANSOPRAZOLE
     Indication: Gastrooesophageal reflux disease
     Route: 065
     Dates: start: 20060101, end: 20151231
  10. PREVACID 24 HR [Suspect]
     Active Substance: LANSOPRAZOLE
     Indication: Gastrooesophageal reflux disease
     Route: 065
     Dates: start: 20060101, end: 20151231
  11. DEXILANT [Suspect]
     Active Substance: DEXLANSOPRAZOLE
     Indication: Gastrooesophageal reflux disease
     Dosage: 60 MG DAILY
     Route: 065
     Dates: start: 20110603, end: 20120326
  12. PANTOPRAZOLE [Suspect]
     Active Substance: PANTOPRAZOLE
     Indication: Gastrooesophageal reflux disease
     Dosage: GENERIC
     Route: 065
     Dates: start: 20170516, end: 20170616
  13. AMLODIPINE [Concomitant]
     Active Substance: AMLODIPINE BESYLATE
     Indication: Blood pressure abnormal
     Route: 065
     Dates: start: 20150127, end: 20150707
  14. GABAPENTIN [Concomitant]
     Active Substance: GABAPENTIN
     Indication: Pain
     Route: 065
     Dates: start: 20101123, end: 20150420
  15. ENALAPRIL [Concomitant]
     Active Substance: ENALAPRIL
     Indication: Blood pressure abnormal
     Route: 065
     Dates: start: 20150531, end: 20151229
  16. FUROSEMIDE [Concomitant]
     Active Substance: FUROSEMIDE
     Indication: Renal disorder
     Route: 065
     Dates: start: 20141013, end: 20141114
  17. DIFLUCAN [Concomitant]
     Active Substance: FLUCONAZOLE
  18. DOXYCYCLINE [Concomitant]
     Active Substance: DOXYCYCLINE
  19. CEFTRIAXONE [Concomitant]
     Active Substance: CEFTRIAXONE
  20. VENTOLIN [Concomitant]
     Active Substance: ALBUTEROL SULFATE
  21. TYLENOL [Concomitant]
     Active Substance: ACETAMINOPHEN
  22. LEVSIN [Concomitant]
     Active Substance: HYOSCYAMINE SULFATE
  23. TRAZODONE [Concomitant]
     Active Substance: TRAZODONE HYDROCHLORIDE
  24. NEURONTIN [Concomitant]
     Active Substance: GABAPENTIN
  25. BENICAR [Concomitant]
     Active Substance: OLMESARTAN MEDOXOMIL
  26. TRAMADOL [Concomitant]
     Active Substance: TRAMADOL
  27. CLONAZEPAM [Concomitant]
     Active Substance: CLONAZEPAM
     Indication: Seizure
     Route: 065
     Dates: start: 20120829, end: 20151030
  28. PROAIR HFA [Concomitant]
     Active Substance: ALBUTEROL SULFATE
  29. PREDNISONE [Concomitant]
     Active Substance: PREDNISONE
  30. LYRICA [Concomitant]
     Active Substance: PREGABALIN
  31. VERAPAMIL [Concomitant]
     Active Substance: VERAPAMIL HYDROCHLORIDE
  32. ALPRAZOLAM [Concomitant]
     Active Substance: ALPRAZOLAM
  33. LEFLUNOMIDE [Concomitant]
     Active Substance: LEFLUNOMIDE
  34. ACETAMINOPHEN [Concomitant]
     Active Substance: ACETAMINOPHEN
     Indication: Pain
     Route: 065
     Dates: start: 20130806, end: 20150528
  35. FLUTICASONE [Concomitant]
     Active Substance: FLUTICASONE
  36. CARBIDOPA\LEVODOPA [Concomitant]
     Active Substance: CARBIDOPA\LEVODOPA
  37. SPIRONOLACTONE [Concomitant]
     Active Substance: SPIRONOLACTONE
  38. POLYETHYL GLYCOL [Concomitant]
  39. TRAZODONE HYDROCHLORIDE [Concomitant]
     Active Substance: TRAZODONE HYDROCHLORIDE
  40. FLUCONAZOLE [Concomitant]
     Active Substance: FLUCONAZOLE
  41. AZITHROMYCIN [Concomitant]
     Active Substance: AZITHROMYCIN
  42. NAPROXEN [Concomitant]
     Active Substance: NAPROXEN
  43. ESCITALOPRAM [Concomitant]
     Active Substance: ESCITALOPRAM OXALATE
  44. DEXAMETHASONE [Concomitant]
     Active Substance: DEXAMETHASONE
  45. HYOSCYAMINE [Concomitant]
     Active Substance: HYOSCYAMINE
  46. HYDRALAZINE [Concomitant]
     Active Substance: HYDRALAZINE HYDROCHLORIDE
  47. VENTOLIN HFA [Concomitant]
     Active Substance: ALBUTEROL SULFATE
  48. INCRUSE ELLIPTA [Concomitant]
     Active Substance: UMECLIDINIUM BROMIDE
  49. ALBUTEROL [Concomitant]
     Active Substance: ALBUTEROL
  50. ACETAMINOPHEN/COD [Concomitant]
  51. IPRATROPIUM [Concomitant]
     Active Substance: IPRATROPIUM
  52. CYANOCOBALAMIN [Concomitant]
     Active Substance: CYANOCOBALAMIN
  53. ZOSTAVAX [Concomitant]
     Active Substance: VARICELLA-ZOSTER VIRUS STRAIN OKA/MERCK LIVE ANTIGEN
  54. PREVNAR [Concomitant]
     Active Substance: PNEUMOCOCCAL 7-VALENT CONJUGATE VACCINE (DIPHTHERIA CRM197 PROTEIN)
  55. METAXALONE [Concomitant]
     Active Substance: METAXALONE
  56. BUPROPION [Concomitant]
     Active Substance: BUPROPION
  57. ADVAIR HFA [Concomitant]
     Active Substance: FLUTICASONE PROPIONATE\SALMETEROL XINAFOATE
  58. VIRTUSSIN AC [Concomitant]
     Active Substance: CODEINE PHOSPHATE\GUAIFENESIN
  59. SPIRIVA [Concomitant]
     Active Substance: TIOTROPIUM BROMIDE MONOHYDRATE
  60. SYMBICORT [Concomitant]
     Active Substance: BUDESONIDE\FORMOTEROL FUMARATE DIHYDRATE
  61. ROPINIROLE [Concomitant]
     Active Substance: ROPINIROLE

REACTIONS (3)
  - Chronic kidney disease [Not Recovered/Not Resolved]
  - Renal injury [Unknown]
  - Renal failure [Unknown]

NARRATIVE: CASE EVENT DATE: 20170919
